FAERS Safety Report 17610270 (Version 2)
Quarter: 2021Q1

REPORT INFORMATION
  Report Type: Spontaneous
  Country: FR (occurrence: FR)
  Receive Date: 20200401
  Receipt Date: 20210129
  Transmission Date: 20210419
  Serious: Yes (Hospitalization, Other)
  Sender: FDA-Public Use
  Company Number: FR-SA-2020SA079914

PATIENT
  Age: 68 Year
  Sex: Female

DRUGS (12)
  1. INEXIUM [ESOMEPRAZOLE MAGNESIUM] [Concomitant]
     Active Substance: ESOMEPRAZOLE MAGNESIUM
     Dosage: 40 MG, QD
     Route: 048
  2. AUBAGIO [Suspect]
     Active Substance: TERIFLUNOMIDE
     Dosage: UNK
     Route: 065
  3. BISOCE [Concomitant]
     Active Substance: BISOPROLOL
     Indication: HYPERTENSION
     Dosage: 2.5 MG, QD
     Route: 048
  4. LOVENOX [LEVOFLOXACIN] [Concomitant]
     Active Substance: LEVOFLOXACIN
     Indication: ANTICOAGULANT THERAPY
     Dosage: 4000 IU, QD
     Route: 058
  5. PROTHROMBIN [Concomitant]
     Active Substance: PROTHROMBIN
  6. FAMPYRA [Concomitant]
     Active Substance: DALFAMPRIDINE
     Dosage: UNK
  7. BLADEX [Concomitant]
  8. BETADOL [Concomitant]
  9. NORADRENALIN [NOREPINEPHRINE] [Concomitant]
     Active Substance: NOREPINEPHRINE
  10. TOLNAFTATE. [Concomitant]
     Active Substance: TOLNAFTATE
  11. AMLOR [Concomitant]
     Active Substance: AMLODIPINE BESYLATE
     Dosage: 10 MG, QD
     Route: 048
  12. LEVOTHYROX [Concomitant]
     Active Substance: LEVOTHYROXINE

REACTIONS (10)
  - Abdominal pain [Unknown]
  - Septic shock [Recovering/Resolving]
  - Multiple sclerosis relapse [Unknown]
  - Gallbladder rupture [Unknown]
  - Peritonitis [Recovering/Resolving]
  - Acute kidney injury [Recovering/Resolving]
  - Altered state of consciousness [Recovered/Resolved]
  - Cholecystitis infective [Recovering/Resolving]
  - Oliguria [Unknown]
  - Sepsis [Unknown]

NARRATIVE: CASE EVENT DATE: 202001
